FAERS Safety Report 14679820 (Version 1)
Quarter: 2018Q1

REPORT INFORMATION
  Report Type: Report from Study
  Country: US (occurrence: US)
  Receive Date: 20180326
  Receipt Date: 20180326
  Transmission Date: 20180509
  Serious: Yes (Hospitalization)
  Sender: FDA-Public Use
  Company Number: US-PFIZER INC-2018118287

PATIENT

DRUGS (5)
  1. PREDNISONE. [Suspect]
     Active Substance: PREDNISONE
     Indication: PROSTATE CANCER METASTATIC
     Dosage: 5 MG, 2X/DAY
     Route: 048
  2. PASIREOTIDE. [Suspect]
     Active Substance: PASIREOTIDE
     Dosage: 80 MG, CYCLIC, (LONG-ACTING INTRAMUSCULAR INJECTION EVERY 28 DAYS, DOSE LEVEL 3: 80 MG)
     Route: 030
  3. PASIREOTIDE. [Suspect]
     Active Substance: PASIREOTIDE
     Dosage: 60 MG, CYCLIC, (LONG-ACTING INTRAMUSCULAR INJECTION EVERY 28 DAYS, DOSE LEVEL 2: 60MG)
     Route: 030
  4. DOCETAXEL. [Suspect]
     Active Substance: DOCETAXEL
     Indication: PROSTATE CANCER METASTATIC
     Dosage: 75 MG/M2, EVERY 21 DAYS
     Route: 042
  5. PASIREOTIDE. [Suspect]
     Active Substance: PASIREOTIDE
     Indication: PROSTATE CANCER METASTATIC
     Dosage: 40 MG, CYCLIC, (LONG-ACTING INTRAMUSCULAR INJECTION EVERY 28 DAYS STARTING DOSE (LEVEL 1) WAS 40 MG)
     Route: 030

REACTIONS (1)
  - Urinary tract infection [Unknown]
